FAERS Safety Report 4994229-1 (Version None)
Quarter: 2006Q1

REPORT INFORMATION
  Report Type: 
  Country: None (occurrence: None)
  Receive Date: 20060313
  Receipt Date: 20051114
  Transmission Date: 20060701
  Serious: Yes (Life-Threatening, Hospitalization)
  Sender: FDA-Public Use
  Company Number: PHEH2005US12141

PATIENT
  Age: 58 Year
  Sex: Female
  Weight: 67.1 kg

DRUGS (5)
  1. TRILEPTAL [Suspect]
     Indication: BIPOLAR II DISORDER
     Dosage: 300 MG,BID,ORAL ; 450 MG, QD,ORAL
     Route: 048
     Dates: start: 20050913, end: 20050919
  2. TRILEPTAL [Suspect]
     Indication: BIPOLAR II DISORDER
     Dosage: 300 MG,BID,ORAL ; 450 MG, QD,ORAL
     Route: 048
     Dates: start: 20050829
  3. ZOCOR [Concomitant]
  4. PREMARIN [Concomitant]
  5. PROTONIX [Concomitant]

REACTIONS (14)
  - ALANINE AMINOTRANSFERASE INCREASED [None]
  - ARTHRALGIA [None]
  - ASPARTATE AMINOTRANSFERASE INCREASED [None]
  - HEADACHE [None]
  - HYPERSENSITIVITY [None]
  - LIVER FUNCTION TEST ABNORMAL [None]
  - LUNG INFILTRATION [None]
  - LYMPHADENOPATHY [None]
  - NEUTROPENIA [None]
  - PRURITUS [None]
  - PYREXIA [None]
  - RASH [None]
  - THROMBOCYTOPENIA [None]
  - WHITE BLOOD CELL COUNT DECREASED [None]
